FAERS Safety Report 8812208 (Version 1)
Quarter: 2012Q4

REPORT INFORMATION
  Report Type: 
  Country: US (occurrence: US)
  Receive Date: 20120927
  Receipt Date: 20120927
  Transmission Date: 20130627
  Serious: Yes (Other)
  Sender: FDA-Public Use
  Company Number: US-ROCHE-1126804

PATIENT
  Sex: Female

DRUGS (13)
  1. AVASTIN [Suspect]
     Indication: BREAST CANCER FEMALE
     Route: 065
  2. HERCEPTIN [Suspect]
     Indication: PRODUCT USED FOR UNKNOWN INDICATION
     Route: 065
  3. XELODA [Suspect]
     Indication: PRODUCT USED FOR UNKNOWN INDICATION
     Route: 065
  4. TAXOL [Concomitant]
  5. TAXOTERE [Concomitant]
  6. EPIRUBICIN [Concomitant]
  7. CYTOXAN [Concomitant]
  8. CARBOPLATIN [Concomitant]
  9. NAVELBINE [Concomitant]
  10. FEMARA [Concomitant]
  11. ZOMETA [Concomitant]
  12. AROMASIN [Concomitant]
  13. ADRIAMYCIN [Concomitant]

REACTIONS (5)
  - Wound [Unknown]
  - Skin lesion [Unknown]
  - Metastases to skin [Unknown]
  - Disease progression [Unknown]
  - Cellulitis [Unknown]
